FAERS Safety Report 14513910 (Version 2)
Quarter: 2018Q2

REPORT INFORMATION
  Report Type: Spontaneous
  Country: US (occurrence: US)
  Receive Date: 20180209
  Receipt Date: 20180502
  Transmission Date: 20180711
  Serious: Yes (Hospitalization, Other)
  Sender: FDA-Public Use
  Company Number: US-DSJP-DSU-2017-144726

PATIENT

DRUGS (3)
  1. BENICAR [Suspect]
     Active Substance: OLMESARTAN MEDOXOMIL
     Dosage: 40 MG, QD
     Route: 048
     Dates: start: 20041118
  2. BENICAR HCT [Suspect]
     Active Substance: HYDROCHLOROTHIAZIDE\OLMESARTAN MEDOXOMIL
     Indication: PRODUCT USED FOR UNKNOWN INDICATION
     Dosage: 20-12.5 MG, QD
     Route: 048
     Dates: end: 20141220
  3. BENICAR [Suspect]
     Active Substance: OLMESARTAN MEDOXOMIL
     Indication: PRODUCT USED FOR UNKNOWN INDICATION
     Dosage: 20 MG, QD
     Route: 048
     Dates: start: 20041118

REACTIONS (7)
  - Large intestine polyp [Unknown]
  - Gastrooesophageal reflux disease [Unknown]
  - Pancreatitis [Unknown]
  - Diverticulitis [Recovering/Resolving]
  - Haemorrhoids [Unknown]
  - Abnormal loss of weight [Recovered/Resolved]
  - Duodenitis [Unknown]

NARRATIVE: CASE EVENT DATE: 20050127
